FAERS Safety Report 17051543 (Version 1)
Quarter: 2019Q4

REPORT INFORMATION
  Report Type: Spontaneous
  Country: US (occurrence: US)
  Receive Date: 20191120
  Receipt Date: 20191120
  Transmission Date: 20200122
  Serious: No
  Sender: FDA-Public Use
  Company Number: US-BEH-2019109620

PATIENT
  Age: 61 Year
  Sex: Female

DRUGS (14)
  1. CROMOLYN [CROMOGLICATE SODIUM] [Concomitant]
     Active Substance: CROMOLYN SODIUM
  2. IPRATROPIUM [Concomitant]
     Active Substance: IPRATROPIUM
  3. PROAIR HFA [Concomitant]
     Active Substance: ALBUTEROL SULFATE
  4. HIZENTRA [Suspect]
     Active Substance: HUMAN IMMUNOGLOBULIN G
     Indication: IMMUNODEFICIENCY COMMON VARIABLE
     Dosage: 13 GRAM (65 ML), QW
     Route: 058
     Dates: start: 20171017
  5. SMZ-TMP [Concomitant]
     Active Substance: SULFAMETHOXAZOLE\TRIMETHOPRIM
  6. BREO ELLIPTA [Concomitant]
     Active Substance: FLUTICASONE FUROATE\VILANTEROL TRIFENATATE
  7. HIZENTRA [Suspect]
     Active Substance: HUMAN IMMUNOGLOBULIN G
     Dosage: UNK
     Route: 058
  8. VITAMIN D NOS [Concomitant]
     Active Substance: VITAMIN D NOS
  9. HIZENTRA [Suspect]
     Active Substance: HUMAN IMMUNOGLOBULIN G
     Route: 058
  10. HIZENTRA [Suspect]
     Active Substance: HUMAN IMMUNOGLOBULIN G
     Dosage: UNK
     Route: 058
  11. DOXYCYCLIN [DOXYCYCLINE HYCLATE] [Concomitant]
  12. MONTELUKAST [Concomitant]
     Active Substance: MONTELUKAST SODIUM
  13. AMOXICILLIN;CLAVULANATE POTASSIUM [Concomitant]
     Active Substance: AMOXICILLIN\CLAVULANATE POTASSIUM
  14. LEVOFLOXACIN. [Concomitant]
     Active Substance: LEVOFLOXACIN

REACTIONS (1)
  - Injection site erythema [Not Recovered/Not Resolved]
